FAERS Safety Report 4364073-7 (Version None)
Quarter: 2004Q2

REPORT INFORMATION
  Report Type: 
  Country: None (occurrence: None)
  Receive Date: 20040519
  Receipt Date: 20040504
  Transmission Date: 20050107
  Serious: Yes (Hospitalization)
  Sender: FDA-Public Use
  Company Number: S04-UKI-02072-01

PATIENT
  Age: 79 Year
  Sex: Female
  Weight: 45 kg

DRUGS (3)
  1. CIPRALEX     (ESCITALOPRAM) [Suspect]
     Indication: DEPRESSION
     Dosage: 10 MG QD PO
     Route: 048
     Dates: start: 20040408, end: 20040414
  2. PERINDOPRIL [Concomitant]
  3. CALCICHEW-D3 [Concomitant]

REACTIONS (4)
  - ABDOMINAL DISCOMFORT [None]
  - CIRCULATORY COLLAPSE [None]
  - DIARRHOEA [None]
  - HYPONATRAEMIA [None]
